FAERS Safety Report 5525419-7 (Version None)
Quarter: 2007Q4

REPORT INFORMATION
  Report Type: 
  Country: None (occurrence: None)
  Receive Date: 20071120
  Receipt Date: 20071108
  Transmission Date: 20080405
  Serious: Yes (Hospitalization)
  Sender: FDA-Public Use
  Company Number: 2007S1010025

PATIENT
  Age: 67 Year
  Sex: Male

DRUGS (10)
  1. PHENYTOIN SODIUM [Suspect]
     Indication: CONVULSION
     Dosage: 300 MG; AT BEDTIME; ORAL
     Route: 048
     Dates: start: 20071005, end: 20071011
  2. SYNTHROID [Concomitant]
  3. COREG [Concomitant]
  4. ASPIRIN [Concomitant]
  5. ALLOPURINOL [Concomitant]
  6. DICLOFENAC SODIUM [Concomitant]
  7. COLCHICINE [Concomitant]
  8. NIASPAN [Concomitant]
  9. DILANTIN [Concomitant]
  10. CRESTOR [Concomitant]

REACTIONS (1)
  - CONVULSION [None]
